FAERS Safety Report 4667320-7 (Version None)
Quarter: 2005Q2

REPORT INFORMATION
  Report Type: 
  Country: None (occurrence: None)
  Receive Date: 20050519
  Receipt Date: 20050519
  Transmission Date: 20051028
  Serious: No
  Sender: FDA-Public Use
  Company Number: None

PATIENT
  Age: 73 Year
  Sex: Male

DRUGS (2)
  1. LORAZEPAM [Suspect]
     Indication: AGITATION
     Dosage: 2 MG IV Q4 H PRN
     Route: 042
  2. LORAZEPAM [Suspect]
     Indication: ANXIETY
     Dosage: 2 MG IV Q4 H PRN
     Route: 042

REACTIONS (3)
  - AGITATION [None]
  - CONDITION AGGRAVATED [None]
  - DYSPNOEA [None]
